FAERS Safety Report 8164595-7 (Version None)
Quarter: 2012Q1

REPORT INFORMATION
  Report Type: 
  Country: None (occurrence: None)
  Receive Date: 20120227
  Receipt Date: 20120215
  Transmission Date: 20120608
  Serious: Yes (Other)
  Sender: FDA-Public Use
  Company Number: BR-AMGEN-BRASP2012010982

PATIENT
  Age: 42 Year
  Sex: Female
  Weight: 82.5 kg

DRUGS (5)
  1. MELOXICAM [Concomitant]
     Indication: RHEUMATOID ARTHRITIS
     Dosage: 15 MG, 1X/DAY
  2. PANTOPRAZOLE [Concomitant]
     Indication: PROPHYLAXIS
     Dosage: UNK
  3. FLUOXETINE HYDROCHLORIDE [Concomitant]
     Indication: ANXIETY
     Dosage: 20 MG, 1X/DAY
  4. ENBREL [Suspect]
     Indication: RHEUMATOID ARTHRITIS
     Dosage: 25 MG, 2X/WEEK
     Route: 058
     Dates: start: 20110801, end: 20120101
  5. ALBUTEROL SULFATE AUTOHALER [Concomitant]
     Indication: ASTHMA
     Dosage: 100 MG, 3X/DAY

REACTIONS (2)
  - ASTHMATIC CRISIS [None]
  - TUBERCULOSIS [None]
